FAERS Safety Report 11568510 (Version 2)
Quarter: 2015Q4

REPORT INFORMATION
  Report Type: Spontaneous
  Country: US (occurrence: US)
  Receive Date: 20150916
  Receipt Date: 20151027
  Transmission Date: 20160304
  Serious: No
  Sender: FDA-Public Use
  Company Number: US-ELI_LILLY_AND_COMPANY-US200908004183

PATIENT
  Age: 80 Year
  Sex: Female

DRUGS (1)
  1. FORTEO [Suspect]
     Active Substance: TERIPARATIDE
     Dosage: UNK, UNK

REACTIONS (9)
  - Fall [Recovered/Resolved with Sequelae]
  - Hypoaesthesia [Unknown]
  - Neck pain [Unknown]
  - Muscle spasms [Unknown]
  - Musculoskeletal disorder [Unknown]
  - Muscular weakness [Unknown]
  - Musculoskeletal stiffness [Unknown]
  - Back injury [Unknown]
  - Pain in extremity [Unknown]
